FAERS Safety Report 7674936-2 (Version None)
Quarter: 2011Q3

REPORT INFORMATION
  Report Type: 
  Country: None (occurrence: None)
  Receive Date: 20110810
  Receipt Date: 20110729
  Transmission Date: 20111222
  Serious: Yes (Hospitalization)
  Sender: FDA-Public Use
  Company Number: DE-JNJFOC-20110800890

PATIENT
  Age: 31 Year
  Sex: Female

DRUGS (2)
  1. REMICADE [Suspect]
     Indication: COLITIS ULCERATIVE
     Route: 042
     Dates: start: 20110601
  2. REMICADE [Suspect]
     Route: 042

REACTIONS (3)
  - CARDIOVASCULAR DISORDER [None]
  - ERYTHEMA NODOSUM [None]
  - MATERNAL EXPOSURE BEFORE PREGNANCY [None]
